FAERS Safety Report 4549046-3 (Version None)
Quarter: 2004Q4

REPORT INFORMATION
  Report Type: 
  Country: None (occurrence: None)
  Receive Date: 20041227
  Receipt Date: 20041022
  Transmission Date: 20050328
  Serious: No
  Sender: FDA-Public Use
  Company Number: 04P-163-0270521-00

PATIENT
  Age: 74 Year
  Sex: Female
  Weight: 68.0396 kg

DRUGS (10)
  1. HUMIRA [Suspect]
     Indication: RHEUMATOID ARTHRITIS
     Dosage: 40 MG, 1 IN 2 WK, SUBCUTANEOUS
     Route: 058
     Dates: start: 20040729
  2. LEVOTHYROXINE SODIUM [Concomitant]
  3. METHYLPREDNISOLONE [Concomitant]
  4. METHOTREXATE SODIUM [Concomitant]
  5. FOLINIC ACID [Concomitant]
  6. LISINOPRIL [Concomitant]
  7. ESOMEPRAZOLE [Concomitant]
  8. SERTRALINE HYDROCHLORIDE [Concomitant]
  9. LATANOPROST [Concomitant]
  10. ASAGAN [Concomitant]

REACTIONS (2)
  - DRUG EFFECT DECREASED [None]
  - LOOSE STOOLS [None]
